FAERS Safety Report 8850982 (Version 2)
Quarter: 2013Q1

REPORT INFORMATION
  Report Type: Spontaneous
  Country: MY (occurrence: MY)
  Receive Date: 20121019
  Receipt Date: 20130107
  Transmission Date: 20140127
  Serious: Yes (Other)
  Sender: FDA-Public Use
  Company Number: PHHY2012MY092973

PATIENT
  Sex: Female

DRUGS (1)
  1. GLIVEC [Suspect]
     Indication: CHRONIC MYELOID LEUKAEMIA
     Dosage: UNK UKN, UNK
     Dates: start: 20100929

REACTIONS (4)
  - VIIth nerve paralysis [Unknown]
  - Blast crisis in myelogenous leukaemia [Unknown]
  - Pancytopenia [Unknown]
  - Drug resistance [Unknown]
